FAERS Safety Report 13703538 (Version 10)
Quarter: 2018Q3

REPORT INFORMATION
  Report Type: Report from Study
  Country: BE (occurrence: BE)
  Receive Date: 20170629
  Receipt Date: 20180921
  Transmission Date: 20181010
  Serious: Yes (Death, Hospitalization, Other)
  Sender: FDA-Public Use
  Company Number: BE-CELGENEUS-BEL-2015103522

PATIENT
  Age: 54 Year
  Sex: Female
  Weight: 42 kg

DRUGS (14)
  1. POMALIDOMIDE [Suspect]
     Active Substance: POMALIDOMIDE
     Indication: PLASMA CELL MYELOMA
     Route: 048
     Dates: start: 20150831, end: 20150920
  2. XANAX [Concomitant]
     Active Substance: ALPRAZOLAM
     Indication: ANXIETY
     Route: 065
  3. DEXAMETHASONE. [Suspect]
     Active Substance: DEXAMETHASONE
     Route: 065
     Dates: start: 20150717, end: 20150830
  4. SEROXAT [Concomitant]
     Active Substance: PAROXETINE HYDROCHLORIDE
     Indication: DEPRESSION
     Route: 065
  5. OXYCONTIN [Concomitant]
     Active Substance: OXYCODONE HYDROCHLORIDE
     Indication: PAIN
     Route: 065
  6. PANTOMED [Concomitant]
     Indication: OESOPHAGITIS
     Route: 065
     Dates: start: 20150205
  7. DEXAMETHASONE. [Suspect]
     Active Substance: DEXAMETHASONE
     Indication: PLASMA CELL MYELOMA
     Route: 065
     Dates: start: 20150831, end: 20150921
  8. DEXAMETHASONE. [Suspect]
     Active Substance: DEXAMETHASONE
     Indication: PNEUMONIA
     Route: 065
     Dates: start: 20150925
  9. ZYLORIC [Concomitant]
     Active Substance: ALLOPURINOL
     Indication: BLOOD URIC ACID INCREASED
     Route: 065
     Dates: start: 20150205
  10. DEXAMETHASONE. [Suspect]
     Active Substance: DEXAMETHASONE
     Route: 065
     Dates: start: 20150324, end: 20150403
  11. ACICLOVIR [Concomitant]
     Active Substance: ACYCLOVIR
     Indication: INFECTION PROPHYLAXIS
     Route: 065
     Dates: start: 20150205
  12. BACTRIM [Concomitant]
     Active Substance: SULFAMETHOXAZOLE\TRIMETHOPRIM
     Indication: INFECTION PROPHYLAXIS
     Route: 065
     Dates: start: 20150205
  13. LORAMET [Concomitant]
     Active Substance: LORMETAZEPAM
     Indication: INSOMNIA
     Route: 065
     Dates: start: 20150205, end: 20150924
  14. CLEXANE [Concomitant]
     Active Substance: ENOXAPARIN SODIUM
     Indication: PROPHYLAXIS
     Route: 065
     Dates: end: 20150924

REACTIONS (5)
  - Neutropenia [Recovered/Resolved]
  - Thrombocytopenia [Not Recovered/Not Resolved]
  - Pneumonia [Recovered/Resolved]
  - Plasma cell myeloma [Fatal]
  - Septic shock [Recovered/Resolved]

NARRATIVE: CASE EVENT DATE: 20150918
